FAERS Safety Report 5176808-4 (Version None)
Quarter: 2006Q4

REPORT INFORMATION
  Report Type: 
  Country: None (occurrence: None)
  Receive Date: 20061218
  Receipt Date: 20061205
  Transmission Date: 20070319
  Serious: Yes (Hospitalization)
  Sender: FDA-Public Use
  Company Number: SEWYE764106DEC06

PATIENT
  Sex: Female

DRUGS (8)
  1. ENBREL [Suspect]
     Indication: JUVENILE ARTHRITIS
     Dosage: 25,0 MG
     Route: 058
     Dates: start: 20061103
  2. OXIKLORIN [Concomitant]
     Indication: MUSCULOSKELETAL PAIN
     Dosage: 300 MG X 1 TABLET
  3. RELIFEX [Concomitant]
     Indication: PAIN
     Dosage: 1000 MG X 1 TABLET
  4. SIRDALUD [Concomitant]
     Indication: MUSCLE RELAXANT THERAPY
     Dosage: 2 MG X 1 TABLET
  5. DOLAN [Concomitant]
     Indication: PAIN
     Dosage: WHEN NEEDED
  6. ACETAMINOPHEN [Concomitant]
     Indication: PAIN
     Dosage: 665 MG X 3-4
  7. METHOTREXATE [Concomitant]
     Indication: MUSCULOSKELETAL PAIN
     Dosage: 15 MG PER DAY
     Route: 058
  8. KALCIPOS [Concomitant]
     Indication: OSTEOPOROSIS
     Dosage: 1-2 TABLETS X 1

REACTIONS (1)
  - DERMATITIS ALLERGIC [None]
